FAERS Safety Report 4955454-9 (Version None)
Quarter: 2006Q1

REPORT INFORMATION
  Report Type: 
  Country: None (occurrence: None)
  Receive Date: 20060328
  Receipt Date: 20050329
  Transmission Date: 20060701
  Serious: Yes (Hospitalization, Other)
  Sender: FDA-Public Use
  Company Number: US-GLAXOSMITHKLINE-A0552421A

PATIENT
  Sex: Male
  Weight: 82.7 kg

DRUGS (7)
  1. PAXIL [Suspect]
     Indication: ANXIETY
     Dosage: 20MG IN THE MORNING
     Route: 048
     Dates: start: 20010102, end: 20020101
  2. SEROQUEL [Concomitant]
     Dosage: 100MG AT NIGHT
     Route: 048
  3. RISPERDAL [Concomitant]
     Dosage: 2MG TWICE PER DAY
     Dates: end: 20010901
  4. DEPAKOTE [Concomitant]
     Dosage: 250MG THREE TIMES PER DAY
  5. TRAZODONE HCL [Concomitant]
     Dosage: 100MG AT NIGHT
     Dates: end: 20010901
  6. LOTEMAX [Concomitant]
  7. DOXYCYCLINE [Concomitant]

REACTIONS (17)
  - AGGRESSION [None]
  - AGITATION [None]
  - ANGER [None]
  - ANXIETY [None]
  - DELUSION [None]
  - DISSOCIATION [None]
  - FEELING ABNORMAL [None]
  - HALLUCINATION, AUDITORY [None]
  - HOMICIDAL IDEATION [None]
  - HOSTILITY [None]
  - MAJOR DEPRESSION [None]
  - OPPOSITIONAL DEFIANT DISORDER [None]
  - PSYCHOTIC DISORDER [None]
  - SELF MUTILATION [None]
  - SOCIAL AVOIDANT BEHAVIOUR [None]
  - SUICIDAL IDEATION [None]
  - SUICIDE ATTEMPT [None]
